FAERS Safety Report 4428998-6 (Version None)
Quarter: 2004Q3

REPORT INFORMATION
  Report Type: 
  Country: None (occurrence: None)
  Receive Date: 20040726
  Receipt Date: 20040315
  Transmission Date: 20050211
  Serious: No
  Sender: FDA-Public Use
  Company Number: USA040362051

PATIENT
  Age: 51 Year
  Sex: Female

DRUGS (9)
  1. FORTEO [Suspect]
     Indication: OSTEOPOROSIS
     Dates: start: 20040312
  2. ZESTRIL [Concomitant]
  3. GAVISCON [Concomitant]
  4. TUMS (CALCIUM CARBONATE) [Concomitant]
  5. PEPCID [Concomitant]
  6. VITAMIN D [Concomitant]
  7. LIBRIUM [Concomitant]
  8. NEXIUM [Concomitant]
  9. PROTONIX [Concomitant]

REACTIONS (2)
  - BLOOD PRESSURE DECREASED [None]
  - PAIN [None]
